FAERS Safety Report 7702435-8 (Version None)
Quarter: 2011Q3

REPORT INFORMATION
  Report Type: 
  Country: None (occurrence: None)
  Receive Date: 20110822
  Receipt Date: 20110816
  Transmission Date: 20111222
  Serious: Yes (Life-Threatening, Hospitalization, Disabling)
  Sender: FDA-Public Use
  Company Number: FR-BRISTOL-MYERS SQUIBB COMPANY-15677156

PATIENT
  Age: 62 Year
  Sex: Male
  Weight: 80 kg

DRUGS (4)
  1. ALFUZOSIN HCL [Suspect]
     Indication: PROSTATIC ADENOMA
     Route: 048
     Dates: end: 20110218
  2. METFORMIN HCL [Suspect]
     Indication: DIABETES MELLITUS
     Route: 048
     Dates: start: 20100901
  3. ONGLYZA [Suspect]
     Indication: DIABETES MELLITUS
     Dosage: AUTHORIZATION NUMBER:22-350
     Dates: start: 20101202, end: 20110215
  4. AMARYL [Suspect]
     Indication: DIABETES MELLITUS
     Route: 048
     Dates: start: 20100901

REACTIONS (6)
  - COLITIS [None]
  - METABOLIC ACIDOSIS [None]
  - COMA [None]
  - RENAL FAILURE [None]
  - PANCREATITIS ACUTE [None]
  - SHOCK [None]
